FAERS Safety Report 9598657 (Version 1)
Quarter: 2013Q4

REPORT INFORMATION
  Report Type: Spontaneous
  Country: US (occurrence: US)
  Receive Date: 20131004
  Receipt Date: 20131004
  Transmission Date: 20140711
  Serious: No
  Sender: FDA-Public Use
  Company Number: US-AMGEN-USASP2013025197

PATIENT
  Age: 56 Year
  Sex: Female
  Weight: 77.1 kg

DRUGS (12)
  1. ENBREL [Suspect]
     Indication: PRODUCT USED FOR UNKNOWN INDICATION
     Dosage: 50 MG/ML, QWK
     Route: 058
  2. MULTIVITAMINS, PLAIN [Concomitant]
     Dosage: UNK
  3. VITAMIN D                          /00107901/ [Concomitant]
     Dosage: 2000 UNIT, UNK
  4. CALCIUM [Concomitant]
     Dosage: 500 UNK, UNK
  5. FOLIC ACID [Concomitant]
     Dosage: 1 MG, UNK
  6. SERTRALINE [Concomitant]
     Dosage: 25 MG, UNK
  7. PREDNISONE [Concomitant]
     Dosage: 1 MG, UNK
  8. METHOTREXATE [Concomitant]
     Dosage: 2.5 MG, UNK
  9. METOPROLOL [Concomitant]
     Dosage: 25 MG, UNK
  10. OXYCODONE [Concomitant]
     Dosage: 10 MG, UNK
  11. PROAIR HFA [Concomitant]
     Dosage: UNK
  12. ESTRADIOL [Concomitant]
     Dosage: 0.05 MG, UNK

REACTIONS (1)
  - Arthralgia [Unknown]
